FAERS Safety Report 6578742-1 (Version None)
Quarter: 2010Q1

REPORT INFORMATION
  Report Type: 
  Country: None (occurrence: None)
  Receive Date: 20100202
  Receipt Date: 20100117
  Transmission Date: 20100710
  Serious: Yes (Death)
  Sender: FDA-Public Use
  Company Number: GB-DEXPHARM-20100020

PATIENT
  Age: 35 Year
  Sex: Female

DRUGS (5)
  1. CHLORHEXIDINE GLUCONATE [Suspect]
     Dosage: 2 % PERCENT, TOPICAL
     Route: 061
  2. VOLPLEX (BATCH 01209) [Suspect]
     Indication: HAEMODIALYSIS
     Dosage: INTRAVENOUS (NOT OTHERWISE SPECIFIED)
     Route: 042
     Dates: start: 20091221, end: 20091221
  3. MIDODRINE HYDROCHLORIDE [Concomitant]
  4. ORAMORPH SR [Concomitant]
  5. SODIUM CHLORIDE [Concomitant]

REACTIONS (3)
  - ANAPHYLACTIC REACTION [None]
  - DYSGEUSIA [None]
  - RESUSCITATION [None]
